FAERS Safety Report 19734489 (Version 1)
Quarter: 2021Q3

REPORT INFORMATION
  Report Type: Spontaneous
  Country: US (occurrence: US)
  Receive Date: 20210823
  Receipt Date: 20210823
  Transmission Date: 20211014
  Serious: Yes (Other)
  Sender: FDA-Public Use
  Company Number: US-BAXTER-2021BAX026480

PATIENT
  Age: 14 Year
  Sex: Male

DRUGS (5)
  1. CISPLATIN. [Suspect]
     Active Substance: CISPLATIN
     Indication: RHABDOMYOSARCOMA
     Dosage: (IN 1 MG/ML D5 1=2 NS OVER 60 MINUTES) (100 MG/M2,1 IN 2 WK)
     Route: 013
  2. DEXAMETHASONE. [Concomitant]
     Active Substance: DEXAMETHASONE
     Indication: PREMEDICATION
     Route: 065
  3. DOXIL [Suspect]
     Active Substance: DOXORUBICIN HYDROCHLORIDE
     Indication: RHABDOMYOSARCOMA
     Dosage: 2 (IN 25 ML D5 1=2 NS OVER 15 MINUTES) (4.5 MG/M2,1 IN 2 WK) ONGOING
     Route: 013
  4. ETOPOSIDE. [Suspect]
     Active Substance: ETOPOSIDE
     Indication: RHABDOMYOSARCOMA
     Route: 048
  5. ONDANSETRON [Concomitant]
     Active Substance: ONDANSETRON
     Indication: PREMEDICATION
     Route: 065

REACTIONS (6)
  - Haematochezia [Unknown]
  - Thrombocytopenia [Unknown]
  - Tinnitus [Unknown]
  - Mucosal inflammation [Unknown]
  - Leukopenia [Unknown]
  - Neutropenia [Unknown]
